FAERS Safety Report 10471669 (Version 2)
Quarter: 2014Q3

REPORT INFORMATION
  Report Type: Report from Study
  Country: US (occurrence: US)
  Receive Date: 20140923
  Receipt Date: 20140923
  Transmission Date: 20150326
  Serious: Yes (Other)
  Sender: FDA-Public Use
  Company Number: US-ALEXION PHARMACEUTICALS INC-A200901508

PATIENT
  Age: 0 Year
  Sex: Female

DRUGS (1)
  1. SOLIRIS [Suspect]
     Active Substance: ECULIZUMAB
     Indication: PAROXYSMAL NOCTURNAL HAEMOGLOBINURIA
     Dosage: UNK
     Route: 042

REACTIONS (13)
  - Dyspnoea [Unknown]
  - Abdominal pain [Unknown]
  - Headache [Unknown]
  - White blood cell count decreased [Unknown]
  - Haemoglobinuria [Unknown]
  - Jaundice [Unknown]
  - Biopsy bone marrow [Unknown]
  - Rash [Not Recovered/Not Resolved]
  - Fatigue [Unknown]
  - Haemolysis [Unknown]
  - Dysphagia [Unknown]
  - Quality of life decreased [Not Recovered/Not Resolved]
  - Chest pain [Unknown]

NARRATIVE: CASE EVENT DATE: 2009
